FAERS Safety Report 8453861-3 (Version None)
Quarter: 2012Q2

REPORT INFORMATION
  Report Type: 
  Country: None (occurrence: None)
  Receive Date: 20120323
  Receipt Date: 20111129
  Transmission Date: 20120825
  Serious: Yes (Other)
  Sender: FDA-Public Use
  Company Number: 163-21880-11110363

PATIENT
  Age: 74 Year
  Sex: Female

DRUGS (25)
  1. ALKERAN [Concomitant]
  2. MSM (METHYSULFONYLMETHANE) [Concomitant]
  3. PROCRIT [Concomitant]
  4. VITAMIN D [Concomitant]
  5. CITALOPRAM HBR (CITALOPRAM HYDROBROMIDE) [Concomitant]
  6. CLOBEATSOL PROPIONATE (CLOBETASOL PROPIONATE) [Concomitant]
  7. VITAMIN B12 [Concomitant]
  8. PREDNISONE TAB [Concomitant]
  9. COQ10 (UBIDECARENONE) [Concomitant]
  10. FISH OIL (FISH OIL) [Concomitant]
  11. ASPIRIN [Concomitant]
  12. ACYCLOVIR [Concomitant]
  13. PROCHLORPERAZINE MALEATE (PROCHLORPERAZINE MALEATE) [Concomitant]
  14. ZETIA [Concomitant]
  15. CLONAZEPAM [Concomitant]
  16. CALCIUM + VITAMIN D (LEKOVIT CA) [Concomitant]
  17. OMEPRAZOLE [Concomitant]
  18. REVLIMID [Suspect]
     Indication: MULTIPLE MYELOMA
     Dosage: 10 MG, 1 IN 1 D, PO; 5 MG, X21 DAYS, PO; 20 MG, DAILY OF 14 DAYS ON, ONE WEEK OFF, PO
     Route: 048
     Dates: start: 20110901
  19. REVLIMID [Suspect]
     Indication: MULTIPLE MYELOMA
     Dosage: 10 MG, 1 IN 1 D, PO; 5 MG, X21 DAYS, PO; 20 MG, DAILY OF 14 DAYS ON, ONE WEEK OFF, PO
     Route: 048
     Dates: start: 20110711
  20. REVLIMID [Suspect]
     Indication: MULTIPLE MYELOMA
     Dosage: 10 MG, 1 IN 1 D, PO; 5 MG, X21 DAYS, PO; 20 MG, DAILY OF 14 DAYS ON, ONE WEEK OFF, PO
     Route: 048
     Dates: start: 20111101
  21. VELCADE [Concomitant]
  22. AREDIA [Concomitant]
  23. LASIX (FURSEMIDE) [Concomitant]
  24. DEXAMETHASONE [Concomitant]
  25. MULTIVITAMIN [Concomitant]

REACTIONS (1)
  - RED BLOOD CELL COUNT DECREASED [None]
